FAERS Safety Report 8393601-X (Version None)
Quarter: 2012Q2

REPORT INFORMATION
  Report Type: 
  Country: None (occurrence: None)
  Receive Date: 20120530
  Receipt Date: 20120517
  Transmission Date: 20120825
  Serious: Yes (Other)
  Sender: FDA-Public Use
  Company Number: AR-AMGEN-ARGSP2012032688

PATIENT
  Sex: Male

DRUGS (9)
  1. CARVEDILOL [Concomitant]
     Dosage: UNK
  2. OXYGEN [Concomitant]
     Dosage: UNK
  3. ALDACTONE [Concomitant]
     Dosage: UNK
     Route: 048
  4. ENBREL [Suspect]
     Indication: RHEUMATOID ARTHRITIS
     Dosage: 50 MG, UNK
     Route: 058
     Dates: start: 20100611, end: 20120301
  5. NEUMOTEROL [Concomitant]
     Dosage: UNK
     Route: 048
  6. PREDNISONE [Concomitant]
     Dosage: UNK
     Route: 048
  7. FUROSEMIDE [Concomitant]
     Dosage: UNK
     Route: 048
  8. ROSUVASTATIN [Concomitant]
     Dosage: UNK
     Route: 048
  9. SPIRIVA [Concomitant]
     Dosage: UNK

REACTIONS (1)
  - PERIPHERAL VASCULAR DISORDER [None]
